FAERS Safety Report 8042365-8 (Version None)
Quarter: 2011Q4

REPORT INFORMATION
  Report Type: 
  Country: None (occurrence: None)
  Receive Date: 20111209
  Receipt Date: 20110909
  Transmission Date: 20120403
  Serious: Yes (Death)
  Sender: FDA-Public Use
  Company Number: TH-2011-00355

PATIENT
  Sex: Male

DRUGS (12)
  1. WELLBUTRIN SR (BUPROPION) (BUPROPION HYDROCHLORIDE) [Concomitant]
  2. SEROSTIM [Concomitant]
  3. COREG (CARVEDILOL) CARVEDILOL) [Concomitant]
  4. SPIRONOLACTONE [Concomitant]
  5. TRUZIVIR (ABACAVIR SULFATE, LAMIVUDINE, AND ZIDOVUDINE) (ZIDOVUDINE, L [Concomitant]
  6. CRESTOR (ROSUVASTATIN) (ROSUVASTATIN CALCIUM) [Concomitant]
  7. OXANDRIN (OXANDROLONE) (OXANDROLONE) [Concomitant]
  8. EGRIFTA [Suspect]
     Indication: LIPODYSTROPHY ACQUIRED
     Dosage: 1 IN 1 D, SUBCUTANEOUS
     Route: 058
  9. LASIX [Concomitant]
  10. LEXIVA (FOSAMPRENAVIR) (FOSAMPRENAVIR CALCIUM) [Concomitant]
  11. LISINOPRIL [Concomitant]
  12. FLOMAX (TAMSULOSIN) (MORNIFLUMATE) [Concomitant]

REACTIONS (1)
  - MYOCARDIAL INFARCTION [None]
